FAERS Safety Report 5766784-5 (Version None)
Quarter: 2008Q3

REPORT INFORMATION
  Report Type: 
  Country: None (occurrence: None)
  Receive Date: 20080612
  Receipt Date: 20080603
  Transmission Date: 20090109
  Serious: Yes (Hospitalization, Other)
  Sender: FDA-Public Use
  Company Number: US-ROCHE-568368

PATIENT
  Sex: Female
  Weight: 54.4 kg

DRUGS (8)
  1. BONIVA [Suspect]
     Indication: OSTEOPOROSIS
     Route: 048
     Dates: start: 20050601, end: 20050101
  2. BONIVA [Suspect]
     Route: 048
     Dates: end: 20080401
  3. IBUPROFEN TABLETS [Suspect]
     Indication: HERPES ZOSTER OPHTHALMIC
     Route: 065
  4. VITAMIN B-12 [Concomitant]
  5. CENTRUM SILVER [Concomitant]
  6. CENTRUM SILVER [Concomitant]
  7. CALCIUM [Concomitant]
  8. ACYCLOVIR SODIUM [Concomitant]

REACTIONS (2)
  - GASTROINTESTINAL ULCER HAEMORRHAGE [None]
  - RELAPSING-REMITTING MULTIPLE SCLEROSIS [None]
